FAERS Safety Report 15505336 (Version 1)
Quarter: 2018Q4

REPORT INFORMATION
  Report Type: Spontaneous
  Country: US (occurrence: US)
  Receive Date: 20181016
  Receipt Date: 20181016
  Transmission Date: 20190205
  Serious: Yes (Other)
  Sender: FDA-Public Use
  Company Number: US-MALLINCKRODT-T201804405

PATIENT
  Age: 59 Year
  Sex: Female
  Weight: 82 kg

DRUGS (1)
  1. HYDROCODONE/ACETAMINOPHEN [Suspect]
     Active Substance: ACETAMINOPHEN\HYDROCODONE
     Indication: PAIN
     Dosage: ONE TABLET, FOUR TIMES DAILY
     Route: 048
     Dates: start: 201808

REACTIONS (5)
  - Crohn^s disease [Unknown]
  - Pain [Unknown]
  - Lung infection [Unknown]
  - Drug ineffective [Unknown]
  - Drug screen negative [Unknown]

NARRATIVE: CASE EVENT DATE: 2018
